FAERS Safety Report 23532400 (Version 1)
Quarter: 2024Q1

REPORT INFORMATION
  Report Type: Other
  Country: MK (occurrence: MK)
  Receive Date: 20240216
  Receipt Date: 20240216
  Transmission Date: 20240410
  Serious: Yes (Life-Threatening, Hospitalization, Other)
  Sender: FDA-Public Use
  Company Number: MK-B.Braun Medical Inc.-2153300

PATIENT
  Age: 42 Year
  Sex: Female

DRUGS (1)
  1. HEPARIN SODIUM IN DEXTROSE [Suspect]
     Active Substance: HEPARIN SODIUM

REACTIONS (1)
  - Drug ineffective [Unknown]
